FAERS Safety Report 10305704 (Version 1)
Quarter: 2014Q3

REPORT INFORMATION
  Report Type: Spontaneous
  Country: US (occurrence: US)
  Receive Date: 20140715
  Receipt Date: 20140715
  Transmission Date: 20150326
  Serious: No
  Sender: FDA-Public Use
  Company Number: US-GLAXOSMITHKLINE-A1062312A

PATIENT
  Age: 62 Year
  Sex: Male

DRUGS (1)
  1. NICORETTE [Suspect]
     Active Substance: NICOTINE
     Indication: EX-TOBACCO USER

REACTIONS (5)
  - Hypersensitivity [Recovered/Resolved]
  - Dyspnoea [Recovered/Resolved]
  - Drug administration error [Unknown]
  - Throat tightness [Recovered/Resolved]
  - Dysphagia [Recovered/Resolved]
